FAERS Safety Report 19945603 (Version 3)
Quarter: 2022Q2

REPORT INFORMATION
  Report Type: Spontaneous
  Country: JP (occurrence: JP)
  Receive Date: 20211012
  Receipt Date: 20220531
  Transmission Date: 20220721
  Serious: Yes (Other)
  Sender: FDA-Public Use
  Company Number: JP-OTSUKA-2021_034654

PATIENT
  Age: 26 Year
  Sex: Male

DRUGS (6)
  1. BUSULFEX [Suspect]
     Active Substance: BUSULFAN
     Indication: Cord blood transplant therapy
     Dosage: 3.2 MG/KG FOR 4 DAYS
     Route: 065
  2. FLUDARABINE PHOSPHATE [Suspect]
     Active Substance: FLUDARABINE PHOSPHATE
     Indication: Cord blood transplant therapy
     Dosage: 30 MG/M2 FOR 6 DAYS
     Route: 065
  3. MELPHALAN [Suspect]
     Active Substance: MELPHALAN
     Indication: Cord blood transplant therapy
     Dosage: 40 MG/M2 FOR 2 DAYS
     Route: 065
  4. TACROLIMUS [Concomitant]
     Active Substance: TACROLIMUS
     Indication: Prophylaxis against graft versus host disease
     Dosage: UNK
     Route: 065
  5. METHOTREXATE [Concomitant]
     Active Substance: METHOTREXATE
     Indication: Prophylaxis against graft versus host disease
     Dosage: UNK
     Route: 065
  6. MYCOPHENOLATE MOFETIL [Concomitant]
     Active Substance: MYCOPHENOLATE MOFETIL
     Indication: Prophylaxis against graft versus host disease
     Dosage: UNK
     Route: 065

REACTIONS (8)
  - Duodenal ulcer [Recovering/Resolving]
  - Necrosis [Unknown]
  - Haemorrhage [Recovering/Resolving]
  - Fusarium infection [Recovered/Resolved]
  - Neutropenia [Unknown]
  - BK virus infection [Recovering/Resolving]
  - Cystitis haemorrhagic [Recovering/Resolving]
  - Rash [Unknown]
